FAERS Safety Report 15006151 (Version 1)
Quarter: 2018Q2

REPORT INFORMATION
  Report Type: Spontaneous
  Country: US (occurrence: US)
  Receive Date: 20180525
  Receipt Date: 20180525
  Transmission Date: 20180711
  Serious: Yes (Disabling, Other)
  Sender: FDA-Public Use
  Company Number: None

PATIENT
  Age: 78 Year
  Sex: Male
  Weight: 117 kg

DRUGS (6)
  1. INSULIN [Concomitant]
     Active Substance: INSULIN NOS
  2. NASAL DECONGESTANT [Concomitant]
     Active Substance: OXYMETAZOLINE HYDROCHLORIDE\PSEUDOEPHEDRINE HYDROCHLORIDE
  3. ACTOS [Suspect]
     Active Substance: PIOGLITAZONE HYDROCHLORIDE
     Indication: TYPE 2 DIABETES MELLITUS
     Dosage: ?          QUANTITY:1 TABLET(S);?
     Route: 048
     Dates: start: 20180523, end: 20180523
  4. ANTACID TABLETS [Concomitant]
     Active Substance: UNSPECIFIED INGREDIENT
  5. MONTELUKAST [Concomitant]
     Active Substance: MONTELUKAST SODIUM
  6. REPAGLINIDE. [Concomitant]
     Active Substance: REPAGLINIDE

REACTIONS (5)
  - Product quality issue [None]
  - Product substitution issue [None]
  - Somnolence [None]
  - Gait disturbance [None]
  - Constipation [None]

NARRATIVE: CASE EVENT DATE: 20180523
